FAERS Safety Report 5745628-1 (Version None)
Quarter: 2008Q2

REPORT INFORMATION
  Report Type: 
  Country: None (occurrence: None)
  Receive Date: 20080521
  Receipt Date: 20080515
  Transmission Date: 20081010
  Serious: Yes (Hospitalization, Other)
  Sender: FDA-Public Use
  Company Number: GB-PFIZER INC-2008002265

PATIENT
  Age: 25 Year
  Sex: Female

DRUGS (3)
  1. CHANTIX [Suspect]
     Indication: SMOKING CESSATION THERAPY
     Dosage: TEXT:1MG
     Route: 048
     Dates: start: 20071122, end: 20071212
  2. QUETIAPINE FUMARATE [Concomitant]
     Route: 048
  3. REBOXETINE [Concomitant]
     Route: 048

REACTIONS (6)
  - ABNORMAL DREAMS [None]
  - DEPRESSION [None]
  - NAUSEA [None]
  - RASH [None]
  - SUICIDAL IDEATION [None]
  - SUICIDE ATTEMPT [None]
